FAERS Safety Report 20175022 (Version 1)
Quarter: 2021Q4

REPORT INFORMATION
  Report Type: Spontaneous
  Country: US (occurrence: US)
  Receive Date: 20211213
  Receipt Date: 20211213
  Transmission Date: 20220303
  Serious: Yes (Hospitalization, Other)
  Sender: FDA-Public Use
  Company Number: US-MLMSERVICE-20211126-3240543-1

PATIENT
  Age: 63 Year
  Sex: Male

DRUGS (1)
  1. MYCOPHENOLATE SODIUM [Suspect]
     Active Substance: MYCOPHENOLATE SODIUM
     Indication: Immunosuppressant drug therapy

REACTIONS (5)
  - Gastric ulcer [Unknown]
  - Intestinal metaplasia [Unknown]
  - Melaena [Recovered/Resolved]
  - Pancytopenia [Unknown]
  - Gastritis [Unknown]
